FAERS Safety Report 5639223-2 (Version None)
Quarter: 2008Q1

REPORT INFORMATION
  Report Type: 
  Country: None (occurrence: None)
  Receive Date: 20080226
  Receipt Date: 20080220
  Transmission Date: 20080703
  Serious: Yes (Other)
  Sender: FDA-Public Use
  Company Number: US-BOEHRINGER INGELHEIM GMBH, GERMANY-2007-BP-26101BP

PATIENT
  Sex: Female

DRUGS (1)
  1. SPIRIVA [Suspect]
     Indication: CHRONIC OBSTRUCTIVE PULMONARY DISEASE

REACTIONS (6)
  - CARDIAC FAILURE [None]
  - COUGH [None]
  - FLUID RETENTION [None]
  - PNEUMONIA [None]
  - SPUTUM ABNORMAL [None]
  - SPUTUM DISCOLOURED [None]
